FAERS Safety Report 13305455 (Version 1)
Quarter: 2017Q1

REPORT INFORMATION
  Report Type: Spontaneous
  Country: US (occurrence: US)
  Receive Date: 20170308
  Receipt Date: 20170308
  Transmission Date: 20170428
  Serious: No
  Sender: FDA-Public Use
  Company Number: US-BAUSCH-BL-2016-019326

PATIENT
  Sex: Female
  Weight: 51.3 kg

DRUGS (2)
  1. LEVOTHYROXINE. [Concomitant]
     Active Substance: LEVOTHYROXINE
     Indication: THYROID DISORDER
     Route: 048
  2. UCERIS [Suspect]
     Active Substance: BUDESONIDE
     Indication: PROCTITIS ULCERATIVE
     Route: 048
     Dates: start: 20160726, end: 20160807

REACTIONS (1)
  - Drug ineffective [Unknown]
